FAERS Safety Report 6751074-4 (Version None)
Quarter: 2010Q2

REPORT INFORMATION
  Report Type: 
  Country: None (occurrence: None)
  Receive Date: 20100602
  Receipt Date: 20100527
  Transmission Date: 20101027
  Serious: Yes (Life-Threatening, Other)
  Sender: FDA-Public Use
  Company Number: PHHY2010US34994

PATIENT
  Sex: Female

DRUGS (2)
  1. TEGRETOL [Suspect]
  2. MOOD MEDICATIONS [Concomitant]

REACTIONS (10)
  - ASTHENIA [None]
  - CARDIAC DISORDER [None]
  - CHEST PAIN [None]
  - CYST [None]
  - FATIGUE [None]
  - HEART RATE INCREASED [None]
  - MOUTH ULCERATION [None]
  - PAIN [None]
  - SCAR [None]
  - SKIN DISORDER [None]
